FAERS Safety Report 13220254 (Version 1)
Quarter: 2017Q1

REPORT INFORMATION
  Report Type: Spontaneous
  Country: US (occurrence: US)
  Receive Date: 20170211
  Receipt Date: 20170211
  Transmission Date: 20170428
  Serious: No
  Sender: FDA-Public Use
  Company Number: US-ACORDA-ACO_128798_2016

PATIENT
  Sex: Female

DRUGS (1)
  1. AMPYRA [Suspect]
     Active Substance: DALFAMPRIDINE
     Indication: PRODUCT USED FOR UNKNOWN INDICATION
     Dosage: UNK
     Route: 065

REACTIONS (8)
  - Weight increased [Unknown]
  - Mental fatigue [Unknown]
  - Fatigue [Unknown]
  - Hypotonia [Unknown]
  - Frustration tolerance decreased [Unknown]
  - Somnolence [Unknown]
  - Anxiety [Unknown]
  - Memory impairment [Unknown]
